FAERS Safety Report 15498397 (Version 1)
Quarter: 2018Q4

REPORT INFORMATION
  Report Type: Spontaneous
  Country: US (occurrence: US)
  Receive Date: 20181015
  Receipt Date: 20181015
  Transmission Date: 20190205
  Serious: Yes (Other)
  Sender: FDA-Public Use
  Company Number: US-VEROSCIENCE-VER-2018-00011

PATIENT

DRUGS (1)
  1. CYCLOSET [Suspect]
     Active Substance: BROMOCRIPTINE MESYLATE

REACTIONS (2)
  - Dizziness [Unknown]
  - Syncope [Unknown]
